FAERS Safety Report 8807626 (Version 2)
Quarter: 2012Q4

REPORT INFORMATION
  Report Type: 
  Country: US (occurrence: US)
  Receive Date: 20120925
  Receipt Date: 20121102
  Transmission Date: 20130627
  Serious: Yes (Hospitalization)
  Sender: FDA-Public Use
  Company Number: US-BIOGENIDEC-2012BI038755

PATIENT
  Age: 58 Year
  Sex: Female

DRUGS (2)
  1. AVONEX [Suspect]
     Indication: MULTIPLE SCLEROSIS
     Route: 030
     Dates: start: 20060620
  2. ALEVE [Concomitant]
     Indication: PREMEDICATION

REACTIONS (4)
  - Lyme disease [Not Recovered/Not Resolved]
  - Bronchitis [Unknown]
  - Emphysema [Not Recovered/Not Resolved]
  - Influenza like illness [Recovered/Resolved]
